FAERS Safety Report 21321961 (Version 1)
Quarter: 2022Q3

REPORT INFORMATION
  Report Type: Spontaneous
  Country: US (occurrence: None)
  Receive Date: 20220909
  Receipt Date: 20220909
  Transmission Date: 20221027
  Serious: Yes (Other)
  Sender: FDA-Public Use
  Company Number: None

PATIENT
  Age: 71 Year
  Sex: Male
  Weight: 96.16 kg

DRUGS (1)
  1. SEMGLEE (INSULIN GLARGINE) [Suspect]
     Active Substance: INSULIN GLARGINE
     Indication: Type 1 diabetes mellitus
     Route: 058
     Dates: start: 20220907, end: 20220907

REACTIONS (5)
  - Therapy change [None]
  - Vomiting [None]
  - Dizziness [None]
  - Palpitations [None]
  - Nonspecific reaction [None]

NARRATIVE: CASE EVENT DATE: 20200907
